FAERS Safety Report 6071252-X (Version None)
Quarter: 2009Q1

REPORT INFORMATION
  Report Type: 
  Country: None (occurrence: None)
  Receive Date: 20090209
  Receipt Date: 20090204
  Transmission Date: 20090719
  Serious: Yes (Hospitalization)
  Sender: FDA-Public Use
  Company Number: FR-ABBOTT-09P-056-0501684-00

PATIENT
  Age: 19 Year
  Sex: Male

DRUGS (2)
  1. DEPAKENE [Suspect]
     Indication: EPILEPSY
     Route: 048
  2. DEPAKENE [Suspect]

REACTIONS (5)
  - DRUG LEVEL DECREASED [None]
  - EPILEPSY [None]
  - INTENTIONAL DRUG MISUSE [None]
  - VOMITING [None]
  - WOUND [None]
